FAERS Safety Report 21233534 (Version 1)
Quarter: 2022Q3

REPORT INFORMATION
  Report Type: Spontaneous
  Country: AU (occurrence: AU)
  Receive Date: 20220819
  Receipt Date: 20220819
  Transmission Date: 20221027
  Serious: Yes (Other)
  Sender: FDA-Public Use
  Company Number: AU-TEVA-2022-AU-2066029

PATIENT
  Age: 21 Year
  Sex: Female

DRUGS (3)
  1. NUVIGIL [Suspect]
     Active Substance: ARMODAFINIL
     Indication: Product used for unknown indication
     Route: 065
  2. TYSABRI [Suspect]
     Active Substance: NATALIZUMAB
     Indication: Product used for unknown indication
     Route: 065
  3. FOLIC ACID\IRON\MINERALS\VITAMINS [Concomitant]
     Active Substance: FOLIC ACID\IRON\MINERALS\VITAMINS
     Indication: Product used for unknown indication

REACTIONS (22)
  - Appendicitis [Unknown]
  - Multiple sclerosis [Unknown]
  - Abdominal pain [Unknown]
  - Blood urine present [Unknown]
  - Decreased appetite [Unknown]
  - Dizziness [Unknown]
  - Dry skin [Unknown]
  - Fatigue [Unknown]
  - Feeling hot [Unknown]
  - Migraine [Unknown]
  - Nausea [Unknown]
  - Oropharyngeal pain [Unknown]
  - Pharyngeal disorder [Unknown]
  - Pharyngeal erythema [Unknown]
  - Pruritus [Unknown]
  - Psoriasis [Unknown]
  - Pyrexia [Unknown]
  - Rash [Unknown]
  - Renal function test abnormal [Unknown]
  - Urinary tract infection [Unknown]
  - White blood cell count increased [Unknown]
  - Prescribed underdose [Unknown]
